FAERS Safety Report 4330211-5 (Version None)
Quarter: 2004Q1

REPORT INFORMATION
  Report Type: 
  Country: None (occurrence: None)
  Receive Date: 20040329
  Receipt Date: 20040319
  Transmission Date: 20041129
  Serious: Yes (Death)
  Sender: FDA-Public Use
  Company Number: 2003AP03819

PATIENT
  Age: 77 Year
  Sex: Male

DRUGS (19)
  1. IRESSA [Suspect]
     Indication: LUNG SQUAMOUS CELL CARCINOMA STAGE UNSPECIFIED
     Dosage: 250 MG DAILY PO
     Route: 048
     Dates: start: 20031020, end: 20031022
  2. IRESSA [Suspect]
     Indication: NON-SMALL CELL LUNG CANCER
     Dosage: 250 MG DAILY PO
     Route: 048
     Dates: start: 20031020, end: 20031022
  3. ACECOL [Concomitant]
  4. FLUITRAN [Concomitant]
  5. ALMARL [Concomitant]
  6. ADALAT [Concomitant]
  7. GASTER [Concomitant]
  8. LANDSEN [Concomitant]
  9. BASEN [Concomitant]
  10. METHYLCOBAL [Concomitant]
  11. KINEDAK [Concomitant]
  12. ALLOPURINOL TAB [Concomitant]
  13. PREDNISOLONE [Concomitant]
  14. ADJUST A [Concomitant]
  15. MAGNESIUM OXIDE [Concomitant]
  16. CARBOPLATIN [Concomitant]
  17. PACLITAXEL [Concomitant]
  18. DOCETAXEL [Concomitant]
  19. GEMCITABINE [Concomitant]

REACTIONS (1)
  - ILEUS [None]
